FAERS Safety Report 18625028 (Version 1)
Quarter: 2020Q4

REPORT INFORMATION
  Report Type: Spontaneous
  Country: HR (occurrence: HR)
  Receive Date: 20201217
  Receipt Date: 20201217
  Transmission Date: 20210114
  Serious: Yes (Other)
  Sender: FDA-Public Use
  Company Number: HR-ASTRAZENECA-2020SF64631

PATIENT
  Sex: Female

DRUGS (11)
  1. LERCANIL [Concomitant]
     Active Substance: LERCANIDIPINE HYDROCHLORIDE
     Route: 065
  2. FULVESTRANT. [Suspect]
     Active Substance: FULVESTRANT
     Dosage: 250 MG, 2X/DAY LAG, 1/14/28 DAY THEN EVERY 28 DAYS
     Route: 030
     Dates: start: 202003
  3. TULIP [Concomitant]
     Route: 065
  4. INSULIN [Concomitant]
     Active Substance: INSULIN NOS
  5. TRAJENTA [Concomitant]
     Active Substance: LINAGLIPTIN
  6. FOLACIN [Concomitant]
  7. PALBOCICLIB [Suspect]
     Active Substance: PALBOCICLIB
     Dosage: 100 MG, CYCLIC (100 MG AT MORNING WITH FOOD/ 3 WEEKS,THEN 1 WEEK PAUSE)100.0MG EVERY CYCLE
     Route: 048
     Dates: start: 202003
  8. GLURENORM [Concomitant]
     Active Substance: GLIQUIDONE
     Route: 065
  9. FURSEMID [Concomitant]
     Active Substance: FUROSEMIDE
  10. PHYSIOTENS [Concomitant]
     Active Substance: MOXONIDINE
     Route: 065
  11. HEFEROL [Concomitant]
     Active Substance: FERROUS FUMARATE
     Route: 065

REACTIONS (5)
  - Blood creatinine increased [Unknown]
  - Leukopenia [Unknown]
  - Fatigue [Unknown]
  - Neutropenia [Unknown]
  - Blood urea increased [Unknown]

NARRATIVE: CASE EVENT DATE: 2020
